FAERS Safety Report 16953330 (Version 1)
Quarter: 2019Q4

REPORT INFORMATION
  Report Type: Report from Study
  Country: FI (occurrence: FI)
  Receive Date: 20191023
  Receipt Date: 20191023
  Transmission Date: 20200122
  Serious: Yes (Other)
  Sender: FDA-Public Use
  Company Number: FI-MYLANLABS-2019M1076464

PATIENT
  Age: 21 Year
  Sex: Female

DRUGS (3)
  1. ZYPREXA [Concomitant]
     Active Substance: OLANZAPINE
     Dosage: UNK
     Dates: start: 20190823
  2. LEPONEX [Suspect]
     Active Substance: CLOZAPINE
     Indication: PSYCHOTIC DISORDER
     Dosage: UNK
     Dates: start: 20190605, end: 20190809
  3. LAMOTRIGINE. [Concomitant]
     Active Substance: LAMOTRIGINE
     Indication: ANXIETY
     Dosage: UNK
     Dates: start: 20190808

REACTIONS (4)
  - Neutrophil count decreased [Recovered/Resolved]
  - Off label use [Recovered/Resolved]
  - Anxiety [Unknown]
  - Acute hepatitis C [Unknown]

NARRATIVE: CASE EVENT DATE: 2019
